FAERS Safety Report 8000787-5 (Version None)
Quarter: 2011Q4

REPORT INFORMATION
  Report Type: 
  Country: None (occurrence: None)
  Receive Date: 20111214
  Receipt Date: 20111109
  Transmission Date: 20120403
  Serious: Yes (Hospitalization, Other)
  Sender: FDA-Public Use
  Company Number: THQ2011A06720

PATIENT
  Age: 67 Year
  Sex: Male

DRUGS (17)
  1. AMLODIPINE [Concomitant]
  2. EXENATIDE [Concomitant]
  3. ACTOS [Suspect]
     Indication: TYPE 2 DIABETES MELLITUS
     Dosage: 30 MG (30 MG,1 IN 1 D) PER ORAL
     Route: 048
     Dates: start: 20081111, end: 20110815
  4. OMEPRAZOLE [Concomitant]
  5. ACETAMINOPHEN [Concomitant]
  6. ATORVASTATIN [Concomitant]
  7. LOSARTAN POTASSIUM [Concomitant]
  8. TRAMADOLE (TRAMADOL HYDROCHLORIDE) [Concomitant]
  9. DICLOPHENAC (DICLOFENAC SODIUM) [Concomitant]
  10. DOBICA (CALICUM DOBESILATE) [Concomitant]
  11. TAMSULOISIN (TAMSULOSIN HYDROCHLORIDE) [Concomitant]
  12. HYDROCHLOROTHIAZIDE [Concomitant]
  13. METFORMIN HCL [Concomitant]
  14. NIMESULIDE [Concomitant]
  15. IBUPROFEN [Concomitant]
  16. VILDAGLIPTIN [Concomitant]
  17. METAMIZOLE [Concomitant]

REACTIONS (2)
  - FATIGUE [None]
  - BLADDER TRANSITIONAL CELL CARCINOMA [None]
